FAERS Safety Report 18913458 (Version 1)
Quarter: 2021Q1

REPORT INFORMATION
  Report Type: Spontaneous
  Country: GB (occurrence: GB)
  Receive Date: 20210218
  Receipt Date: 20210218
  Transmission Date: 20210420
  Serious: Yes (Other)
  Sender: FDA-Public Use
  Company Number: GB-TEVA-2021-GB-1871830

PATIENT
  Age: 64 Year
  Sex: Female
  Weight: 75 kg

DRUGS (6)
  1. SANDRENA [Interacting]
     Active Substance: ESTRADIOL
     Indication: HORMONE REPLACEMENT THERAPY
     Route: 061
     Dates: start: 201801
  2. LEVOTHYROXINE. [Interacting]
     Active Substance: LEVOTHYROXINE
     Dates: start: 2010
  3. LEVOTHYROXINE. [Suspect]
     Active Substance: LEVOTHYROXINE
     Indication: SKIN DISORDER
     Dosage: 50UG ? 100UG
     Route: 048
     Dates: start: 2010
  4. FRUSEMIDE [Concomitant]
     Active Substance: FUROSEMIDE
     Dates: start: 1992
  5. LEVOTHYROXINE. [Concomitant]
     Active Substance: LEVOTHYROXINE
     Dates: start: 2010
  6. AMITRIPTYLINE [Interacting]
     Active Substance: AMITRIPTYLINE
     Dosage: STARTING OFF AT 50MG AND INCREASING TO 100MG
     Route: 065

REACTIONS (2)
  - Drug interaction [Unknown]
  - Dry mouth [Not Recovered/Not Resolved]
